FAERS Safety Report 4353094-6 (Version None)
Quarter: 2004Q2

REPORT INFORMATION
  Report Type: 
  Country: None (occurrence: None)
  Receive Date: 20040429
  Receipt Date: 20040427
  Transmission Date: 20050107
  Serious: Yes (Death)
  Sender: FDA-Public Use
  Company Number: GBR-2004-0000849

PATIENT
  Age: 28 Year
  Sex: Male

DRUGS (6)
  1. OXYCONTIN [Suspect]
     Indication: PAIN
     Dosage: 20 MG, SINGLE, INTRAVENOUS; 60 MG, DAILY, UNKNOWN
     Route: 042
     Dates: start: 20040104, end: 20040104
  2. OXYCONTIN [Suspect]
     Indication: PAIN
     Dosage: 20 MG, SINGLE, INTRAVENOUS; 60 MG, DAILY, UNKNOWN
     Route: 042
     Dates: start: 20040105, end: 20040105
  3. RITALIN [Concomitant]
  4. VALIUM [Concomitant]
  5. SOMADRIL (CARISOPRODOL) [Concomitant]
  6. ZYPREXA [Concomitant]

REACTIONS (1)
  - DEATH [None]
